FAERS Safety Report 18660736 (Version 2)
Quarter: 2021Q1

REPORT INFORMATION
  Report Type: Report from Study
  Country: None (occurrence: US)
  Receive Date: 20201223
  Receipt Date: 20210308
  Transmission Date: 20210419
  Serious: Yes (Hospitalization)
  Sender: FDA-Public Use
  Company Number: US-ABBVIE-20K-163-3700464-00

PATIENT
  Sex: Female
  Weight: 70.37 kg

DRUGS (10)
  1. ECONAZOLE NITRATE. [Concomitant]
     Active Substance: ECONAZOLE NITRATE
     Indication: LOCALISED INFECTION
  2. PROPANOLOL [Concomitant]
     Active Substance: PROPRANOLOL HYDROCHLORIDE
     Indication: TREMOR
  3. PROPANOLOL [Concomitant]
     Active Substance: PROPRANOLOL HYDROCHLORIDE
     Indication: HYPERTENSION
  4. SYNTHROID [Suspect]
     Active Substance: LEVOTHYROXINE SODIUM
     Indication: HYPOTHYROIDISM
     Route: 048
     Dates: start: 2000
  5. PROPANOLOL [Concomitant]
     Active Substance: PROPRANOLOL HYDROCHLORIDE
     Indication: SEIZURE
  6. COLCHICINE. [Concomitant]
     Active Substance: COLCHICINE
     Indication: PERICARDITIS
  7. CLINPRO 5000 [Concomitant]
     Active Substance: SODIUM FLUORIDE
     Indication: PROPHYLAXIS
     Dosage: IRON SUCROSE
  8. ASPIRIN. [Concomitant]
     Active Substance: ASPIRIN
     Indication: PERICARDITIS
  9. PROTONIX [Concomitant]
     Active Substance: PANTOPRAZOLE SODIUM
     Indication: GASTROOESOPHAGEAL REFLUX DISEASE
  10. PROPANOLOL [Concomitant]
     Active Substance: PROPRANOLOL HYDROCHLORIDE
     Indication: AUTONOMIC NERVOUS SYSTEM IMBALANCE

REACTIONS (7)
  - Weight fluctuation [Unknown]
  - Small fibre neuropathy [Not Recovered/Not Resolved]
  - Infection [Recovered/Resolved]
  - Clostridium difficile infection [Recovered/Resolved]
  - Seizure [Not Recovered/Not Resolved]
  - Cerebral disorder [Not Recovered/Not Resolved]
  - Anaemia [Not Recovered/Not Resolved]

NARRATIVE: CASE EVENT DATE: 2001
